FAERS Safety Report 7006694-9 (Version None)
Quarter: 2010Q3

REPORT INFORMATION
  Report Type: 
  Country: None (occurrence: None)
  Receive Date: 20100921
  Receipt Date: 20100920
  Transmission Date: 20110219
  Serious: Yes (Hospitalization)
  Sender: FDA-Public Use
  Company Number: US-BRISTOL-MYERS SQUIBB COMPANY-14110845

PATIENT
  Age: 78 Year
  Sex: Male
  Weight: 76 kg

DRUGS (16)
  1. COUMADIN [Suspect]
     Indication: ATRIAL FIBRILLATION
     Route: 048
     Dates: start: 20071212, end: 20080221
  2. PLACEBO [Interacting]
     Route: 048
     Dates: start: 20080211, end: 20080220
  3. GEMCITABINE [Concomitant]
     Indication: PANCREATIC CARCINOMA
     Dosage: CUMULATIVE DOSE: 4000 MG.
     Route: 042
     Dates: start: 20080211, end: 20080218
  4. MIRALAX [Concomitant]
     Route: 048
     Dates: start: 20080114
  5. ACETAMINOPHEN AND HYDROCODONE BITARTRATE [Concomitant]
     Route: 048
     Dates: start: 20071128
  6. KLOR-CON [Concomitant]
     Route: 048
     Dates: start: 20070718
  7. DOXAZOSIN MESYLATE [Concomitant]
     Route: 048
     Dates: start: 20071219
  8. METOPROLOL [Concomitant]
     Route: 048
     Dates: start: 20071120
  9. LISINOPRIL [Concomitant]
     Route: 048
     Dates: start: 20071219, end: 20080218
  10. FUROSEMIDE [Concomitant]
     Route: 048
     Dates: start: 20080111
  11. DIGITEK [Concomitant]
     Route: 048
     Dates: start: 20080111
  12. MESALAZINE [Concomitant]
     Route: 048
     Dates: start: 20080102
  13. MEGESTROL [Concomitant]
     Route: 048
     Dates: start: 20080118
  14. DECADRON [Concomitant]
     Route: 042
     Dates: start: 20080211
  15. ANZEMET [Concomitant]
     Route: 042
     Dates: start: 20080211
  16. REGLAN [Concomitant]
     Route: 048
     Dates: start: 20080208

REACTIONS (9)
  - ANAEMIA [None]
  - ASTHENIA [None]
  - CONSTIPATION [None]
  - DRUG INTERACTION [None]
  - INTERNATIONAL NORMALISED RATIO INCREASED [None]
  - PLATELET COUNT DECREASED [None]
  - PROTHROMBIN TIME PROLONGED [None]
  - RECTAL HAEMORRHAGE [None]
  - SMALL INTESTINAL OBSTRUCTION [None]
